FAERS Safety Report 8949870 (Version 1)
Quarter: 2012Q4

REPORT INFORMATION
  Report Type: 
  Country: AR (occurrence: AR)
  Receive Date: 20121206
  Receipt Date: 20121206
  Transmission Date: 20130627
  Serious: Yes (Hospitalization, Other)
  Sender: FDA-Public Use
  Company Number: AR-PFIZER INC-2012304784

PATIENT
  Age: 53 Year
  Sex: Female

DRUGS (9)
  1. RAPAMUNE [Suspect]
     Indication: RENAL TRANSPLANT
     Dosage: 1 mg, 1x/day
     Route: 048
     Dates: start: 2006
  2. LOSARTAN [Concomitant]
     Dosage: UNK
  3. CALCIUM [Concomitant]
     Dosage: UNK
  4. VITAMIN B-COMPLEX FORTE [Concomitant]
     Dosage: UNK
  5. AZACORTID [Concomitant]
     Dosage: UNK
  6. DELTASONE [Concomitant]
     Dosage: UNK
  7. T4 [Concomitant]
     Dosage: UNK
  8. ERYTHROPOIETIN [Concomitant]
     Dosage: UNK
  9. TAURAL [Concomitant]
     Dosage: UNK

REACTIONS (3)
  - Gastroenteritis [Recovered/Resolved]
  - Pulmonary haemorrhage [Recovered/Resolved]
  - Pulmonary oedema [Unknown]
